FAERS Safety Report 9696254 (Version 2)
Quarter: 2013Q4

REPORT INFORMATION
  Report Type: Spontaneous
  Country: DE (occurrence: None)
  Receive Date: 20131115
  Receipt Date: 20131121
  Transmission Date: 20140711
  Serious: Yes (Life-Threatening, Hospitalization)
  Sender: FDA-Public Use
  Company Number: AUR-APL-2013-09427

PATIENT
  Age: 81 Year
  Sex: Female

DRUGS (5)
  1. METFORMIN [Suspect]
     Indication: TYPE 2 DIABETES MELLITUS
     Dosage: 2000 MG (1000 MG, 2 IN 1 D) ORAL
     Route: 048
     Dates: start: 20130906
  2. RAMIPRIL (RAMIPRIL) [Concomitant]
  3. SIMVASTATIN (SIMVASTATIN) [Concomitant]
  4. METOPROLOL (METOPROLOL) [Concomitant]
  5. TRIAMTERENE AND HYDROCHLOROTHIAZID (DYAZIDE) [Concomitant]

REACTIONS (2)
  - Lactic acidosis [None]
  - Renal failure acute [None]
